FAERS Safety Report 5485385-X (Version None)
Quarter: 2007Q4

REPORT INFORMATION
  Report Type: 
  Country: None (occurrence: None)
  Receive Date: 20071002
  Receipt Date: 20070227
  Transmission Date: 20080405
  Serious: No
  Sender: FDA-Public Use
  Company Number: 2007016017

PATIENT
  Age: 12 Year
  Sex: Male
  Weight: 40.8237 kg

DRUGS (1)
  1. DEPO-TESTOSTERONE [Suspect]
     Indication: BLOOD TESTOSTERONE DECREASED
     Dosage: (200 MG), INTRAMUSCULAR
     Route: 030
     Dates: start: 20070201, end: 20070201

REACTIONS (2)
  - DRUG ADMINISTRATION ERROR [None]
  - TESTICULAR PAIN [None]
